FAERS Safety Report 14211520 (Version 1)
Quarter: 2017Q4

REPORT INFORMATION
  Report Type: Spontaneous
  Country: US (occurrence: US)
  Receive Date: 20171121
  Receipt Date: 20171121
  Transmission Date: 20180321
  Serious: Yes (Other)
  Sender: FDA-Public Use
  Company Number: US-DSJP-DSU-2017-143896

PATIENT

DRUGS (1)
  1. BENICAR [Suspect]
     Active Substance: OLMESARTAN MEDOXOMIL
     Indication: ESSENTIAL HYPERTENSION
     Dosage: 20 MG, BID
     Route: 048
     Dates: start: 20110804, end: 20170722

REACTIONS (3)
  - Diverticulitis [Unknown]
  - Enteritis [Unknown]
  - Diverticulum [Unknown]

NARRATIVE: CASE EVENT DATE: 20120806
